FAERS Safety Report 10655244 (Version 1)
Quarter: 2014Q4

REPORT INFORMATION
  Report Type: Spontaneous
  Country: FR (occurrence: None)
  Receive Date: 20141212
  Receipt Date: 20141212
  Transmission Date: 20150529
  Serious: Yes (Hospitalization)
  Sender: FDA-Public Use
  Company Number: FR2014GSK030380

PATIENT
  Age: 102 Year
  Sex: Female

DRUGS (13)
  1. DEROXAT (PAROXETINE HYDROCHLORIDE) UNKNOWN (LOT # UNKNOWN) [Suspect]
     Active Substance: PAROXETINE HYDROCHLORIDE
     Indication: PRODUCT USED FOR UNKNOWN INDICATION
     Route: 048
     Dates: end: 20140916
  2. TARDYFERON (FERROUS SULFATE) [Concomitant]
     Active Substance: FERROUS SULFATE\FERROUS SULFATE, DRIED
  3. IKOREL [Concomitant]
     Active Substance: NICORANDIL
  4. KARDEGIC [Suspect]
     Active Substance: ASPIRIN LYSINE
     Indication: PRODUCT USED FOR UNKNOWN INDICATION
     Route: 048
     Dates: end: 20140916
  5. LASILIX [Concomitant]
     Active Substance: FUROSEMIDE
  6. FORLAX [Concomitant]
     Active Substance: POLYETHYLENE GLYCOL 4000
  7. NITRIDEM (NITROGLYCERINE) [Concomitant]
  8. NOROXINE (NORFLOXACIN) [Concomitant]
  9. DOLIPRANE [Concomitant]
     Active Substance: ACETAMINOPHEN
  10. RENITEC [Concomitant]
     Active Substance: ENALAPRIL MALEATE
  11. NOZINAN (LEVOMEPROMAZINE) FILM-COATED TABLET, 100MG [Concomitant]
     Active Substance: LEVOMEPROMAZINE
  12. SERETIDE [Concomitant]
     Active Substance: FLUTICASONE FUROATE\SALMETEROL XINAFOATE
  13. UVEDOSE (COLECALCIFEROL) (100000 IU (INTERNATIONL UNIT, ORAL SOLUTION) (COLECALCIFEROL)) [Concomitant]
     Active Substance: CHOLECALCIFEROL

REACTIONS (6)
  - Haematuria [None]
  - Thrombosis [None]
  - Abdominal pain lower [None]
  - C-reactive protein abnormal [None]
  - Rectal haemorrhage [None]
  - Inflammation [None]

NARRATIVE: CASE EVENT DATE: 20140914
